FAERS Safety Report 24125716 (Version 1)
Quarter: 2024Q3

REPORT INFORMATION
  Report Type: Spontaneous
  Country: CA (occurrence: None)
  Receive Date: 20240723
  Receipt Date: 20240723
  Transmission Date: 20241016
  Serious: Yes (Other)
  Sender: ORION
  Company Number: CA-PFIZER INC-202400192214

PATIENT
  Age: 59 Year
  Sex: Female

DRUGS (3)
  1. METHOTREXATE [Suspect]
     Active Substance: METHOTREXATE
     Indication: Psoriatic arthropathy
     Dates: start: 202107
  2. METHOTREXATE [Suspect]
     Active Substance: METHOTREXATE
  3. ENBREL [Concomitant]
     Active Substance: BENZYL ALCOHOL\ETANERCEPT
     Dates: start: 201304, end: 201305

REACTIONS (4)
  - Ostomy bag placement [Recovering/Resolving]
  - Stoma closure [Recovering/Resolving]
  - Treatment failure [Unknown]
  - Impaired healing [Unknown]

NARRATIVE: CASE EVENT DATE: 20240201
